FAERS Safety Report 21514119 (Version 4)
Quarter: 2024Q1

REPORT INFORMATION
  Report Type: Spontaneous
  Country: DE (occurrence: DE)
  Receive Date: 20221027
  Receipt Date: 20240226
  Transmission Date: 20240410
  Serious: Yes (Other)
  Sender: FDA-Public Use
  Company Number: DE-NOVARTISPH-NVSC2022DE236720

PATIENT
  Age: 56 Year
  Sex: Female
  Weight: 58 kg

DRUGS (19)
  1. CARBOPLATIN [Suspect]
     Active Substance: CARBOPLATIN
     Indication: Non-small cell lung cancer
     Dosage: 1764 MG, QW (588 MG, TIW)
     Route: 042
     Dates: start: 20220914
  2. CARBOPLATIN [Suspect]
     Active Substance: CARBOPLATIN
     Dosage: 1869 MG, QW (623 MG, TIW)
     Route: 042
     Dates: start: 20230830
  3. PACLITAXEL [Suspect]
     Active Substance: PACLITAXEL
     Indication: Non-small cell lung cancer
     Dosage: 1062 MG, QW (354 MG, TIW)
     Route: 065
  4. OPDIVO [Suspect]
     Active Substance: NIVOLUMAB
     Indication: Non-small cell lung cancer
     Dosage: 1080 MG, QW (360 MG, TIW)
     Route: 042
     Dates: start: 20220914
  5. OPDIVO [Suspect]
     Active Substance: NIVOLUMAB
     Dosage: 1080 MG, QW (360 MG, TIW)
     Route: 042
     Dates: start: 20230830
  6. YERVOY [Suspect]
     Active Substance: IPILIMUMAB
     Indication: Non-small cell lung cancer
     Dosage: 59 MG (EVERY 6 WEEKS)
     Route: 042
     Dates: start: 20220914
  7. YERVOY [Suspect]
     Active Substance: IPILIMUMAB
     Dosage: 192 MG, QW (TIW (3 WEEK)
     Route: 042
     Dates: start: 20230830
  8. METAMIZOLE [Concomitant]
     Active Substance: METAMIZOLE
     Indication: Product used for unknown indication
     Dosage: UNK
     Route: 065
     Dates: start: 20220914
  9. APREPITANT [Concomitant]
     Active Substance: APREPITANT
     Indication: Product used for unknown indication
     Dosage: UNK
     Route: 065
     Dates: start: 20220914
  10. PREDNISOLONE [Concomitant]
     Active Substance: PREDNISOLONE
     Indication: Product used for unknown indication
     Dosage: UNK
     Route: 065
     Dates: start: 20221012, end: 20221026
  11. CLEMASTINE FUMARATE [Concomitant]
     Active Substance: CLEMASTINE FUMARATE
     Indication: Product used for unknown indication
     Dosage: UNK
     Route: 065
     Dates: start: 20220914
  12. PALONOSETRON [Concomitant]
     Active Substance: PALONOSETRON
     Indication: Product used for unknown indication
     Dosage: UNK
     Route: 065
     Dates: start: 20220914
  13. BUDESONIDE [Concomitant]
     Active Substance: BUDESONIDE
     Indication: Product used for unknown indication
     Dosage: UNK
     Route: 065
     Dates: start: 20221012, end: 20221021
  14. METHYLPREDNISOLONE [Concomitant]
     Active Substance: METHYLPREDNISOLONE
     Indication: Product used for unknown indication
     Dosage: 96 MG, QD
     Route: 065
     Dates: start: 20230919, end: 20230928
  15. METHYLPREDNISOLONE [Concomitant]
     Active Substance: METHYLPREDNISOLONE
     Dosage: 96 MG, QD
     Route: 065
     Dates: start: 20230928, end: 20231012
  16. METHYLPREDNISOLONE [Concomitant]
     Active Substance: METHYLPREDNISOLONE
     Dosage: 96 MG, QD
     Route: 065
     Dates: start: 20231012, end: 20231030
  17. METHYLPREDNISOLONE [Concomitant]
     Active Substance: METHYLPREDNISOLONE
     Dosage: 96 MG, QD
     Route: 065
     Dates: start: 20231030
  18. METHYLPREDNISOLONE [Concomitant]
     Active Substance: METHYLPREDNISOLONE
     Dosage: UNK
     Route: 065
  19. MYCOPHENOLATE MOFETIL [Concomitant]
     Active Substance: MYCOPHENOLATE MOFETIL
     Indication: Product used for unknown indication
     Dosage: UNK
     Route: 065
     Dates: start: 20231123

REACTIONS (6)
  - Immune-mediated hepatitis [Not Recovered/Not Resolved]
  - Immune-mediated enterocolitis [Not Recovered/Not Resolved]
  - Hepatomegaly [Recovering/Resolving]
  - Blood bilirubin increased [Recovering/Resolving]
  - Prescribed overdose [Unknown]
  - Off label use [Unknown]

NARRATIVE: CASE EVENT DATE: 20221012
